FAERS Safety Report 6446831-8 (Version None)
Quarter: 2009Q4

REPORT INFORMATION
  Report Type: 
  Country: None (occurrence: None)
  Receive Date: 20091119
  Receipt Date: 20091111
  Transmission Date: 20100525
  Serious: Yes (Other)
  Sender: FDA-Public Use
  Company Number: PHHO2009IT12718

PATIENT

DRUGS (4)
  1. TAMOXIFEN COMP-TAM+ [Suspect]
     Indication: BONE DENSITY DECREASED
     Dosage: UNK
     Dates: start: 20071109, end: 20081205
  2. QUINAPRIL [Suspect]
  3. DECAPEPTYL [Concomitant]
     Indication: BONE DENSITY DECREASED
     Dosage: UNK
     Dates: start: 20071109, end: 20081205
  4. DECAPEPTYL [Concomitant]
     Dosage: UNK
     Dates: start: 20081206

REACTIONS (2)
  - HEPATOTOXICITY [None]
  - TRANSAMINASES INCREASED [None]
